FAERS Safety Report 25069572 (Version 1)
Quarter: 2025Q1

REPORT INFORMATION
  Report Type: Report from Study
  Country: CA (occurrence: CA)
  Receive Date: 20250312
  Receipt Date: 20250312
  Transmission Date: 20250409
  Serious: Yes (Death)
  Sender: ABBVIE
  Company Number: CA-ABBVIE-6174622

PATIENT
  Age: 79 Year
  Sex: Male

DRUGS (1)
  1. LUPRON [Suspect]
     Active Substance: LEUPROLIDE ACETATE
     Indication: Prostate cancer
     Dosage: FORM STRENGTH : 22.5 MG, PRE-FILLED SYRINGE
     Route: 030
     Dates: start: 20230805, end: 20241122

REACTIONS (1)
  - Death [Fatal]

NARRATIVE: CASE EVENT DATE: 20250307
